FAERS Safety Report 5034167-1 (Version None)
Quarter: 2006Q2

REPORT INFORMATION
  Report Type: 
  Country: None (occurrence: None)
  Receive Date: 20060621
  Receipt Date: 20060608
  Transmission Date: 20061013
  Serious: Yes (Other)
  Sender: FDA-Public Use
  Company Number: ENTC2006-0080

PATIENT
  Age: 62 Year
  Sex: Male

DRUGS (4)
  1. STALEVO 150 [Suspect]
     Indication: PARKINSON'S DISEASE
     Dosage: 750 MG, 5 IN 1 D, ORAL
     Route: 048
     Dates: start: 20040101
  2. PARCOPA [Suspect]
     Indication: PARKINSON'S DISEASE
     Dosage: ORAL
     Route: 048
     Dates: start: 20050101, end: 20051101
  3. REQUIP [Suspect]
  4. SINEMET [Suspect]
     Dates: end: 20050301

REACTIONS (10)
  - AGGRESSION [None]
  - ASTHENIA [None]
  - CHEST PAIN [None]
  - DYSKINESIA [None]
  - HALLUCINATION, VISUAL [None]
  - HEADACHE [None]
  - HYPERHIDROSIS [None]
  - MUSCULOSKELETAL STIFFNESS [None]
  - PYREXIA [None]
  - RASH [None]
